FAERS Safety Report 8131853-1 (Version None)
Quarter: 2012Q1

REPORT INFORMATION
  Report Type: 
  Country: None (occurrence: None)
  Receive Date: 20120213
  Receipt Date: 20120210
  Transmission Date: 20120608
  Serious: Yes (Other)
  Sender: FDA-Public Use
  Company Number: US-PFIZER INC-2012037298

PATIENT
  Sex: Female
  Weight: 49.4 kg

DRUGS (7)
  1. CHANTIX [Suspect]
     Dosage: UNK
     Route: 048
     Dates: start: 20090101
  2. SPIRIVA [Concomitant]
     Indication: ASTHMA
     Dosage: ^30MG^ DAILY
  3. CHANTIX [Suspect]
     Dosage: 1 MG, 2X/DAY
     Route: 048
     Dates: start: 20120201
  4. BENADRYL [Suspect]
     Indication: ANTIALLERGIC THERAPY
     Dosage: UNK
  5. SPIRIVA [Concomitant]
     Indication: CHRONIC OBSTRUCTIVE PULMONARY DISEASE
  6. CHANTIX [Suspect]
     Indication: SMOKING CESSATION THERAPY
     Dosage: UNK
     Route: 048
  7. CHANTIX [Suspect]
     Dosage: 0.5 MG, DAILY
     Route: 048
     Dates: start: 20120202, end: 20120201

REACTIONS (8)
  - DRUG INEFFECTIVE [None]
  - SWELLING FACE [None]
  - RASH [None]
  - EYE SWELLING [None]
  - ERYTHEMA [None]
  - OEDEMA MOUTH [None]
  - LIP SWELLING [None]
  - FEELING HOT [None]
